FAERS Safety Report 7549255-5 (Version None)
Quarter: 2011Q2

REPORT INFORMATION
  Report Type: 
  Country: None (occurrence: None)
  Receive Date: 20110615
  Receipt Date: 20110613
  Transmission Date: 20111010
  Serious: Yes (Death)
  Sender: FDA-Public Use
  Company Number: PHHY2011US52024

PATIENT
  Sex: Female

DRUGS (2)
  1. FEMARA [Suspect]
     Indication: BREAST CANCER FEMALE
     Dosage: 2.5  DAILY
     Route: 048
     Dates: start: 20090826
  2. FEMARA [Suspect]
     Indication: BONE NEOPLASM MALIGNANT

REACTIONS (1)
  - DEATH [None]
